FAERS Safety Report 6373157-3 (Version None)
Quarter: 2009Q3

REPORT INFORMATION
  Report Type: 
  Country: None (occurrence: None)
  Receive Date: 20090924
  Receipt Date: 20090112
  Transmission Date: 20100115
  Serious: No
  Sender: FDA-Public Use
  Company Number: US-ASTRAZENECA-2009UW00907

PATIENT
  Age: 42 Year
  Sex: Female
  Weight: 77.1 kg

DRUGS (4)
  1. SEROQUEL [Suspect]
     Indication: BIPOLAR DISORDER
     Dosage: 25-900 MG
     Route: 048
     Dates: start: 20050101, end: 20070101
  2. SEROQUEL [Suspect]
     Dosage: 200 MG, THREE TIMES A MONTH
     Route: 048
  3. HUMALOG [Concomitant]
  4. LANTUS [Concomitant]

REACTIONS (2)
  - FEELING DRUNK [None]
  - THIRST [None]
